FAERS Safety Report 10166673 (Version 1)
Quarter: 2014Q2

REPORT INFORMATION
  Report Type: Spontaneous
  Country: JP (occurrence: JP)
  Receive Date: 20140512
  Receipt Date: 20140512
  Transmission Date: 20141212
  Serious: Yes (Other)
  Sender: FDA-Public Use
  Company Number: JP-PFIZER INC-2014125478

PATIENT
  Age: 27 Year
  Sex: Female
  Weight: 52 kg

DRUGS (4)
  1. HEPARIN SODIUM [Suspect]
     Dosage: 10000 IU, DAILY
  2. ACETYLSALICYLIC ACID [Suspect]
     Indication: ANTIPHOSPHOLIPID SYNDROME
     Dosage: UNK
  3. IVIG [Suspect]
     Indication: ANTIPHOSPHOLIPID SYNDROME
     Dosage: UNK
     Route: 042
  4. PREDNISOLONE [Concomitant]
     Indication: ANTIPHOSPHOLIPID SYNDROME
     Dosage: 20 MG, 1X/DAY

REACTIONS (1)
  - Abortion spontaneous [Unknown]
